FAERS Safety Report 11330338 (Version 1)
Quarter: 2015Q3

REPORT INFORMATION
  Report Type: Spontaneous
  Country: US (occurrence: US)
  Receive Date: 20150803
  Receipt Date: 20150803
  Transmission Date: 20151125
  Serious: No
  Sender: FDA-Public Use
  Company Number: US-PFIZER INC-2015065644

PATIENT
  Sex: Female

DRUGS (1)
  1. LYRICA [Suspect]
     Active Substance: PREGABALIN
     Indication: PARTIAL SEIZURES
     Dosage: UNK,(1 TABLET EVERY TWO DAYS)

REACTIONS (1)
  - Psychomotor hyperactivity [Unknown]
